FAERS Safety Report 5802475-X (Version None)
Quarter: 2008Q3

REPORT INFORMATION
  Report Type: 
  Country: None (occurrence: None)
  Receive Date: 20080708
  Receipt Date: 20080620
  Transmission Date: 20090109
  Serious: Yes (Death, Life-Threatening)
  Sender: FDA-Public Use
  Company Number: IT-BAYER-200821436GPV

PATIENT
  Age: 51 Year
  Sex: Male

DRUGS (9)
  1. FLUDARABINE PHOSPHATE [Suspect]
     Indication: BONE MARROW CONDITIONING REGIMEN
  2. PREDNISONE TAB [Suspect]
     Indication: B-CELL LYMPHOMA
     Dates: start: 20031201
  3. CYCLOPHOSPHAMIDE [Suspect]
     Indication: B-CELL LYMPHOMA
     Dates: start: 20031201
  4. DOXORUBICIN HCL [Suspect]
     Indication: B-CELL LYMPHOMA
     Dates: start: 20031201
  5. VINCRISTINE [Suspect]
     Indication: B-CELL LYMPHOMA
     Dates: start: 20031201
  6. RITUXIMAB [Suspect]
     Indication: B-CELL LYMPHOMA
  7. THIOTEPA [Suspect]
     Indication: BONE MARROW CONDITIONING REGIMEN
  8. CYCLOSPORINE [Concomitant]
     Indication: PROPHYLAXIS AGAINST GRAFT VERSUS HOST DISEASE
  9. METHOTREXATE [Concomitant]
     Indication: PROPHYLAXIS AGAINST GRAFT VERSUS HOST DISEASE

REACTIONS (9)
  - ALANINE AMINOTRANSFERASE INCREASED [None]
  - ASPARTATE AMINOTRANSFERASE INCREASED [None]
  - AUTOIMMUNE HEPATITIS [None]
  - BLOOD ALKALINE PHOSPHATASE INCREASED [None]
  - FATIGUE [None]
  - HEPATOMEGALY [None]
  - JAUNDICE [None]
  - LIVER INJURY [None]
  - PULMONARY SEPSIS [None]
